FAERS Safety Report 18687346 (Version 2)
Quarter: 2021Q1

REPORT INFORMATION
  Report Type: Spontaneous
  Country: RS (occurrence: RS)
  Receive Date: 20201231
  Receipt Date: 20210107
  Transmission Date: 20210419
  Serious: Yes (Other)
  Sender: FDA-Public Use
  Company Number: NVSC2020RS341924

PATIENT
  Age: 45 Year
  Sex: Female

DRUGS (2)
  1. VOTRIENT [Suspect]
     Active Substance: PAZOPANIB HYDROCHLORIDE
     Indication: CLEAR CELL RENAL CELL CARCINOMA
     Dosage: 800 MG, QD
     Route: 065
     Dates: start: 20190320, end: 20200416
  2. TENSEC [Concomitant]
     Indication: HYPERTENSION
     Dosage: 2.5 MG
     Route: 065

REACTIONS (17)
  - Transaminases increased [Unknown]
  - Feeling abnormal [Unknown]
  - Hypertension [Unknown]
  - Hair colour changes [Unknown]
  - Chronic kidney disease [Unknown]
  - Palmar-plantar erythrodysaesthesia syndrome [Unknown]
  - Headache [Unknown]
  - Nephrotic syndrome [Recovered/Resolved with Sequelae]
  - Hypertension [Recovering/Resolving]
  - Malaise [Not Recovered/Not Resolved]
  - Nausea [Unknown]
  - Anal abscess [Unknown]
  - Photophobia [Unknown]
  - Fatigue [Unknown]
  - Staphylococcal skin infection [Unknown]
  - Blood creatinine increased [Recovering/Resolving]
  - Dyspepsia [Unknown]

NARRATIVE: CASE EVENT DATE: 20200312
